FAERS Safety Report 6886912-8 (Version None)
Quarter: 2010Q3

REPORT INFORMATION
  Report Type: 
  Country: None (occurrence: None)
  Receive Date: 20100730
  Receipt Date: 20100726
  Transmission Date: 20110219
  Serious: Yes (Hospitalization)
  Sender: FDA-Public Use
  Company Number: FR-WYE-G06457310

PATIENT
  Sex: Male

DRUGS (7)
  1. TORISEL [Suspect]
     Indication: RENAL CANCER METASTATIC
     Route: 042
     Dates: start: 20090105, end: 20090626
  2. SECTRAL [Concomitant]
  3. PREVISCAN [Concomitant]
     Route: 048
  4. NEXIUM [Concomitant]
     Route: 048
  5. MOTILIUM [Concomitant]
     Dosage: UNKNOWN
     Route: 048
  6. CORDARONE [Concomitant]
     Dates: start: 20070727
  7. AMLOR [Concomitant]
     Route: 048

REACTIONS (2)
  - HYPOXIA [None]
  - INTERSTITIAL LUNG DISEASE [None]
